FAERS Safety Report 4460360-2 (Version None)
Quarter: 2004Q3

REPORT INFORMATION
  Report Type: 
  Country: None (occurrence: None)
  Receive Date: 20040928
  Receipt Date: 20040408
  Transmission Date: 20050211
  Serious: No
  Sender: FDA-Public Use
  Company Number: US-GLAXOSMITHKLINE-A0506350A

PATIENT
  Age: 82 Year
  Sex: Female
  Weight: 64.1 kg

DRUGS (2)
  1. SEREVENT [Suspect]
     Indication: ASTHMA
     Route: 055
  2. SEREVENT [Concomitant]
     Route: 055

REACTIONS (1)
  - HEADACHE [None]
